FAERS Safety Report 7970782-0 (Version None)
Quarter: 2011Q4

REPORT INFORMATION
  Report Type: 
  Country: None (occurrence: None)
  Receive Date: 20111212
  Receipt Date: 20111205
  Transmission Date: 20120403
  Serious: Yes (Death)
  Sender: FDA-Public Use
  Company Number: PHHY2011JP107672

PATIENT
  Sex: Female
  Weight: 31 kg

DRUGS (12)
  1. NIZATIDINE [Concomitant]
     Dosage: 150 MG, DAILY
     Route: 048
     Dates: start: 20110812
  2. TASIGNA [Suspect]
     Indication: CHRONIC MYELOID LEUKAEMIA
     Dosage: 200 MG, DAILY
     Route: 048
     Dates: start: 20100318
  3. CARVEDILOL [Concomitant]
     Dosage: 2.5 MG, DAILY
  4. SIGMART [Concomitant]
     Dosage: 10 MG, DAILY
     Dates: start: 20110812
  5. LASIX [Concomitant]
     Dosage: 20 MG, DAILY
     Dates: start: 20110812
  6. CARVEDILOL [Concomitant]
     Dosage: 5 MG, DAILY
     Dates: start: 20110812
  7. URINORM [Concomitant]
     Dosage: 25 MG, DAILY
     Route: 048
     Dates: start: 20110812
  8. SM [Concomitant]
     Dosage: 3 G, DAILY
     Route: 048
     Dates: start: 20110812
  9. SM [Concomitant]
     Dosage: 3.9 G, DAILY
  10. LANIRAPID [Concomitant]
     Dosage: 0.05 MG, DAILY
     Route: 048
     Dates: start: 20110812
  11. FAMOTIDINE [Concomitant]
     Dosage: 10 MG, DAILY
     Route: 048
  12. ZOLPIDEM [Concomitant]
     Dosage: 5 MG, DAILY
     Route: 048
     Dates: start: 20110812

REACTIONS (1)
  - MARASMUS [None]
